FAERS Safety Report 6527970-X (Version None)
Quarter: 2009Q4

REPORT INFORMATION
  Report Type: 
  Country: None (occurrence: None)
  Receive Date: 20091222
  Receipt Date: 20090922
  Transmission Date: 20100525
  Serious: No
  Sender: FDA-Public Use
  Company Number: ALL1-2009-02849

PATIENT
  Age: 34 Year
  Sex: Male
  Weight: 98 kg

DRUGS (10)
  1. VYVANSE [Suspect]
     Indication: ATTENTION DEFICIT/HYPERACTIVITY DISORDER
     Dosage: 40 MG, 1X/DAY:QD, ORAL
     Route: 048
     Dates: start: 20090922
  2. OMEGA 3 /00931501/ (DOCOSAHEXANOIC ACID, EICOSAPENTAENOIC ACID) [Concomitant]
  3. CALCIUM (CALCIUM) [Concomitant]
  4. MAGNESIUM OXIDE (MAGNESIUM OXIDE) [Concomitant]
  5. B12 TIME RELEASE (CYANOCOBALAMIN-TANNIN COMPLEX) [Concomitant]
  6. FOLIC ACID WITH DHA [Concomitant]
  7. VITAMIN C /00008001/ (ASCORBIC ACID) [Concomitant]
  8. PROBIOTICS [Concomitant]
  9. VITAMINS NOS (VITAMINS NOS) [Concomitant]
  10. IBUPROFEN [Concomitant]

REACTIONS (8)
  - ABDOMINAL DISCOMFORT [None]
  - BODY TEMPERATURE INCREASED [None]
  - FEELING OF BODY TEMPERATURE CHANGE [None]
  - HYPERHIDROSIS [None]
  - PALPITATIONS [None]
  - SOMNOLENCE [None]
  - THROAT TIGHTNESS [None]
  - TREMOR [None]
